FAERS Safety Report 6238478-3 (Version None)
Quarter: 2009Q2

REPORT INFORMATION
  Report Type: 
  Country: None (occurrence: None)
  Receive Date: 20090622
  Receipt Date: 20090618
  Transmission Date: 20091009
  Serious: Yes (Death, Hospitalization)
  Sender: FDA-Public Use
  Company Number: US-ROCHE-638019

PATIENT
  Sex: Male
  Weight: 74.8 kg

DRUGS (1)
  1. CAPECITABINE [Suspect]
     Indication: COLORECTAL CANCER
     Route: 048
     Dates: start: 20090510, end: 20090601

REACTIONS (4)
  - ANOREXIA [None]
  - DEATH [None]
  - DIARRHOEA [None]
  - NAUSEA [None]
